FAERS Safety Report 17097183 (Version 1)
Quarter: 2019Q4

REPORT INFORMATION
  Report Type: Spontaneous
  Country: US (occurrence: US)
  Receive Date: 20191129
  Receipt Date: 20191129
  Transmission Date: 20200122
  Serious: Yes (Disabling)
  Sender: FDA-Public Use
  Company Number: None

PATIENT
  Age: 62 Year
  Sex: Female
  Weight: 51.3 kg

DRUGS (8)
  1. ASCLERA [Suspect]
     Active Substance: POLIDOCANOL
     Indication: VARICOSE VEIN
     Route: 042
     Dates: start: 20191121, end: 20191121
  2. CITRUS BIOFLAVONOIDS. [Suspect]
     Active Substance: CITRUS BIOFLAVONOIDS
  3. MAGNESIUM [Suspect]
     Active Substance: MAGNESIUM
  4. GINGKO BILOBA [Concomitant]
     Active Substance: GINKGO
  5. VITAMIN D [Suspect]
     Active Substance: VITAMIN D NOS
  6. CALCIUM [Suspect]
     Active Substance: CALCIUM
  7. TUMERIC [Suspect]
     Active Substance: HERBALS\TURMERIC
  8. ASCLERA [Suspect]
     Active Substance: POLIDOCANOL
     Indication: SPIDER VEIN
     Route: 042
     Dates: start: 20191121, end: 20191121

REACTIONS (6)
  - Tinnitus [None]
  - Fatigue [None]
  - Chest pain [None]
  - Pain in extremity [None]
  - Palpitations [None]
  - Deafness [None]

NARRATIVE: CASE EVENT DATE: 20191123
